FAERS Safety Report 23956755 (Version 4)
Quarter: 2025Q1

REPORT INFORMATION
  Report Type: Spontaneous
  Country: US (occurrence: US)
  Receive Date: 20240610
  Receipt Date: 20250203
  Transmission Date: 20250409
  Serious: Yes (Hospitalization, Other)
  Sender: SANOFI AVENTIS
  Company Number: US-SA-SAC20240607000137

PATIENT
  Age: 60 Year
  Sex: Female
  Weight: 55 kg

DRUGS (9)
  1. DUPIXENT [Suspect]
     Active Substance: DUPILUMAB
     Indication: Sinusitis
     Dosage: 300 MG, QOW
     Route: 058
     Dates: start: 202010
  2. DUPIXENT [Suspect]
     Active Substance: DUPILUMAB
     Indication: Asthma
  3. MONTELUKAST SODIUM [Concomitant]
     Active Substance: MONTELUKAST SODIUM
  4. NOVOLOG [Concomitant]
     Active Substance: INSULIN ASPART
  5. ALBUTEROL\IPRATROPIUM [Concomitant]
     Active Substance: ALBUTEROL\IPRATROPIUM
  6. FLUCONAZOLE [Concomitant]
     Active Substance: FLUCONAZOLE
  7. TOPIRAMATE [Concomitant]
     Active Substance: TOPIRAMATE
  8. INSULIN LISPRO [Concomitant]
     Active Substance: INSULIN LISPRO
  9. ALBUTEROL SULFATE [Concomitant]
     Active Substance: ALBUTEROL SULFATE

REACTIONS (14)
  - Pneumonia [Unknown]
  - Respiration abnormal [Unknown]
  - Pulmonary oedema [Unknown]
  - Pulmonary congestion [Not Recovered/Not Resolved]
  - Cough [Not Recovered/Not Resolved]
  - Wheezing [Not Recovered/Not Resolved]
  - Regurgitation [Not Recovered/Not Resolved]
  - Lung disorder [Unknown]
  - Dyspnoea [Unknown]
  - Asthma [Not Recovered/Not Resolved]
  - Dry eye [Not Recovered/Not Resolved]
  - Eye pruritus [Not Recovered/Not Resolved]
  - Eye irritation [Not Recovered/Not Resolved]
  - Product use in unapproved indication [Unknown]

NARRATIVE: CASE EVENT DATE: 20240512
